FAERS Safety Report 4805088-1 (Version None)
Quarter: 2005Q4

REPORT INFORMATION
  Report Type: 
  Country: None (occurrence: None)
  Receive Date: 20051017
  Receipt Date: 20050930
  Transmission Date: 20060501
  Serious: Yes (Life-Threatening)
  Sender: FDA-Public Use
  Company Number: 218342

PATIENT
  Age: 41 Year
  Sex: Female
  Weight: 70 kg

DRUGS (4)
  1. XOLAIR (OMALIZUMAB) PWDR + SOLVENT, INJECTION SOLN, 150MG [Suspect]
     Indication: ASTHMA
     Dosage: 150 MG, 1/MONTH, SUBCUTANEOUS
     Route: 058
  2. SALBUTAMOL (ALBUTEROL SULFATE, ALBUTEROL) [Concomitant]
  3. SALMETEROL XINAFOATE INHALER (SALMETEROL XINAFOATE) [Concomitant]
  4. FLUTICASONE (FULTICASONE PROPIONATE) [Concomitant]

REACTIONS (1)
  - ASTHMA [None]
